FAERS Safety Report 9961438 (Version 2)
Quarter: 2014Q1

REPORT INFORMATION
  Report Type: Spontaneous
  Country: CA (occurrence: CA)
  Receive Date: 20140305
  Receipt Date: 20140305
  Transmission Date: 20141002
  Serious: Yes (Life-Threatening, Other)
  Sender: FDA-Public Use
  Company Number: CA-PFIZER INC-2013287840

PATIENT
  Sex: Male

DRUGS (4)
  1. ASPIRIN ^BAYER^ [Concomitant]
     Indication: PERIPHERAL VASCULAR DISORDER
     Dosage: UNK
  2. CITALOPRAM [Concomitant]
     Indication: STRESS
     Dosage: UNK
  3. CITALOPRAM [Concomitant]
     Indication: SLEEP DISORDER
  4. CELEBREX [Suspect]
     Indication: PAIN
     Dosage: 600 MG DAILY
     Route: 048
     Dates: start: 2005, end: 20130218

REACTIONS (6)
  - Off label use [Unknown]
  - Myocardial infarction [Recovered/Resolved]
  - Medical device complication [Unknown]
  - Respiratory disorder [Not Recovered/Not Resolved]
  - Activities of daily living impaired [Not Recovered/Not Resolved]
  - Dyspnoea [Not Recovered/Not Resolved]
